FAERS Safety Report 6867270-1 (Version None)
Quarter: 2010Q3

REPORT INFORMATION
  Report Type: 
  Country: None (occurrence: None)
  Receive Date: 20100722
  Receipt Date: 20100709
  Transmission Date: 20110219
  Serious: Yes (Other)
  Sender: FDA-Public Use
  Company Number: US-ELI_LILLY_AND_COMPANY-US201007002331

PATIENT
  Sex: Female
  Weight: 55.782 kg

DRUGS (7)
  1. ZYPREXA [Suspect]
     Indication: PSYCHOTIC DISORDER
     Route: 048
  2. GEODON [Concomitant]
     Indication: PSYCHOTIC DISORDER
     Dosage: 20 MG, EACH MORNING
     Route: 048
  3. GEODON [Concomitant]
     Dosage: 20 MG, OTHER
     Route: 048
  4. GEODON [Concomitant]
     Dosage: 40 MG, EACH EVENING
     Route: 048
  5. SEROQUEL [Concomitant]
     Indication: PSYCHOTIC DISORDER
     Route: 048
  6. TRAZODONE [Concomitant]
     Indication: SLEEP DISORDER
     Dosage: 200 MG, DAILY (1/D)
  7. LORAZEPAM [Concomitant]

REACTIONS (13)
  - COMMUNICATION DISORDER [None]
  - DECREASED APPETITE [None]
  - DEMENTIA [None]
  - DIZZINESS [None]
  - FATIGUE [None]
  - FEELING ABNORMAL [None]
  - FEELING HOT [None]
  - HALLUCINATION, VISUAL [None]
  - NAUSEA [None]
  - SLEEP DISORDER [None]
  - SUICIDAL BEHAVIOUR [None]
  - VOMITING [None]
  - WHITE BLOOD CELL COUNT INCREASED [None]
